FAERS Safety Report 5482431-4 (Version None)
Quarter: 2007Q4

REPORT INFORMATION
  Report Type: 
  Country: None (occurrence: None)
  Receive Date: 20071011
  Receipt Date: 20071003
  Transmission Date: 20080405
  Serious: Yes (Other)
  Sender: FDA-Public Use
  Company Number: US-JNJFOC-20070803969

PATIENT
  Sex: Female
  Weight: 78.02 kg

DRUGS (15)
  1. REMICADE [Suspect]
  2. REMICADE [Suspect]
     Indication: RHEUMATOID ARTHRITIS
  3. METHOTREXATE [Concomitant]
  4. PLAQUENIL [Concomitant]
  5. ACTONEL [Concomitant]
  6. COZAAR [Concomitant]
  7. LORTAB [Concomitant]
  8. LEVOTHYROXINE SODIUM [Concomitant]
  9. VITAMIN B-12 [Concomitant]
  10. NITRO-QUICK [Concomitant]
  11. DILTIAZEM [Concomitant]
  12. ZOCOR [Concomitant]
  13. PROTONIX [Concomitant]
  14. PREDNISONE [Concomitant]
  15. FOLIC ACID [Concomitant]

REACTIONS (1)
  - MYCOBACTERIUM ABSCESSUS INFECTION [None]
